FAERS Safety Report 16653052 (Version 2)
Quarter: 2019Q3

REPORT INFORMATION
  Report Type: Report from Study
  Country: US (occurrence: US)
  Receive Date: 20190731
  Receipt Date: 20190815
  Transmission Date: 20191004
  Serious: Yes (Death, Hospitalization, Other)
  Sender: FDA-Public Use
  Company Number: US-ACTELION-A-NJ2014-104109

PATIENT
  Age: 10 Year
  Sex: Female
  Weight: 44.44 kg

DRUGS (12)
  1. STRATTERA [Concomitant]
     Active Substance: ATOMOXETINE HYDROCHLORIDE
     Dosage: UNK
     Dates: start: 20110517, end: 20190723
  2. ZOFRAN [Concomitant]
     Active Substance: ONDANSETRON HYDROCHLORIDE
  3. IBUPROFEN. [Concomitant]
     Active Substance: IBUPROFEN
     Dosage: UNK
     Dates: start: 20110517, end: 20190723
  4. PSEUDOEPHEDRINE. [Concomitant]
     Active Substance: PSEUDOEPHEDRINE HYDROCHLORIDE
     Route: 048
  5. MUCINEX [Concomitant]
     Active Substance: GUAIFENESIN
     Route: 048
  6. LIDOCAINE. [Concomitant]
     Active Substance: LIDOCAINE
  7. CLOBAZAM. [Concomitant]
     Active Substance: CLOBAZAM
     Dosage: 15 MG, BID
  8. DEPAKOTE [Concomitant]
     Active Substance: DIVALPROEX SODIUM
     Dosage: UNK
     Dates: start: 20110517, end: 20190723
  9. VITAMIN D [Concomitant]
     Active Substance: VITAMIN D NOS
     Dosage: 5000 DF, QD
  10. LAMOTRIGINE. [Concomitant]
     Active Substance: LAMOTRIGINE
     Dosage: 300 MG, BID
     Route: 048
  11. ZAVESCA [Suspect]
     Active Substance: MIGLUSTAT
     Indication: NIEMANN-PICK DISEASE
     Dosage: 200 MG, BID
     Route: 048
     Dates: start: 20091223, end: 20190704
  12. ATOMOXETINE. [Concomitant]
     Active Substance: ATOMOXETINE HYDROCHLORIDE
     Dosage: 25 MG, QAM
     Route: 048

REACTIONS (16)
  - Condition aggravated [Fatal]
  - Tachypnoea [Unknown]
  - Oxygen saturation decreased [Unknown]
  - Tachycardia [Unknown]
  - Hypoxia [Unknown]
  - Cough [Unknown]
  - Respiratory failure [Fatal]
  - Pneumonia [Unknown]
  - Dyspnoea [Unknown]
  - Acute respiratory distress syndrome [Fatal]
  - Parainfluenzae virus infection [Fatal]
  - Gastrostomy [Recovered/Resolved]
  - Seizure [Unknown]
  - Niemann-Pick disease [Fatal]
  - Pleural effusion [Unknown]
  - Hypotension [Unknown]

NARRATIVE: CASE EVENT DATE: 20140717
